FAERS Safety Report 5699313-5 (Version None)
Quarter: 2008Q2

REPORT INFORMATION
  Report Type: 
  Country: None (occurrence: None)
  Receive Date: 20080404
  Receipt Date: 20080401
  Transmission Date: 20081010
  Serious: Yes (Life-Threatening, Hospitalization)
  Sender: FDA-Public Use
  Company Number: TPA2007A02281

PATIENT
  Age: 44 Year
  Sex: Female
  Weight: 48.0813 kg

DRUGS (4)
  1. ACTOS [Suspect]
     Indication: TYPE 2 DIABETES MELLITUS
     Dosage: 15 MG, 2 DOSES, PER ORAL
     Route: 048
     Dates: start: 20071031, end: 20071101
  2. AVANDIA [Suspect]
     Indication: TYPE 2 DIABETES MELLITUS
     Dosage: 4 MG, PER ORAL
     Route: 048
     Dates: start: 20071031, end: 20071101
  3. FLUCONAZOLE [Concomitant]
  4. INSULIN (INSULIN) [Concomitant]

REACTIONS (3)
  - DRUG DISPENSING ERROR [None]
  - MENTAL STATUS CHANGES [None]
  - METABOLIC ACIDOSIS [None]
